FAERS Safety Report 8526812 (Version 5)
Quarter: 2015Q2

REPORT INFORMATION
  Report Type: Spontaneous
  Country: US (occurrence: US)
  Receive Date: 20120423
  Receipt Date: 20150415
  Transmission Date: 20150821
  Serious: Yes (Hospitalization, Other)
  Sender: FDA-Public Use
  Company Number: US-MSD-1204USA02815

PATIENT
  Sex: Female
  Weight: 43.36 kg

DRUGS (6)
  1. FOSAMAX [Suspect]
     Active Substance: ALENDRONATE SODIUM
     Indication: OSTEOPOROSIS
     Dosage: 70 MG, QW
     Route: 048
     Dates: start: 20090605
  2. CALCIUM (UNSPECIFIED) [Concomitant]
     Active Substance: CALCIUM
     Indication: OSTEOPOROSIS
  3. FOSAMAX [Suspect]
     Active Substance: ALENDRONATE SODIUM
     Indication: OSTEOPOROSIS
     Dosage: 70 MG, QW
     Route: 048
     Dates: start: 20090605
  4. MK-9278 [Concomitant]
     Active Substance: VITAMINS
     Dates: start: 2000
  5. CALCIUM (UNSPECIFIED) (+) VITAMIN D (UNSPECIFIED) [Concomitant]
     Active Substance: CALCIUM CARBONATE\VITAMIN D
     Dosage: 1500 MG, UNK
  6. VITAMIN D [Concomitant]
     Active Substance: CHOLECALCIFEROL
     Indication: OSTEOPOROSIS

REACTIONS (19)
  - Procedural haemorrhage [Unknown]
  - Osteoporosis [Unknown]
  - Fall [Unknown]
  - Stress [Unknown]
  - Dental caries [Unknown]
  - Anaemia postoperative [Unknown]
  - Lung disorder [Unknown]
  - Gastrooesophageal reflux disease [Unknown]
  - Low turnover osteopathy [Unknown]
  - Urinary tract infection [Unknown]
  - Constipation [Unknown]
  - Inappropriate schedule of drug administration [Unknown]
  - Wrist fracture [Unknown]
  - Pelvic fracture [Unknown]
  - Dental caries [Unknown]
  - Decreased appetite [Unknown]
  - Hip fracture [Unknown]
  - Arthropathy [Unknown]
  - Depression [Unknown]

NARRATIVE: CASE EVENT DATE: 2009
